FAERS Safety Report 11137837 (Version 1)
Quarter: 2015Q2

REPORT INFORMATION
  Report Type: Spontaneous
  Country: US (occurrence: US)
  Receive Date: 20150526
  Receipt Date: 20150526
  Transmission Date: 20150821
  Serious: No
  Sender: FDA-Public Use
  Company Number: US-MALLINCKRODT-T201501112

PATIENT
  Age: 50 Year
  Sex: Female
  Weight: 86 kg

DRUGS (5)
  1. NORTRIPTYLINE [Concomitant]
     Active Substance: NORTRIPTYLINE
     Dosage: 10 MG, QD HS
  2. AMBIEN [Concomitant]
     Active Substance: ZOLPIDEM TARTRATE
     Dosage: PRN
  3. H.P. ACTHAR [Suspect]
     Active Substance: CORTICOTROPIN
     Indication: MULTIPLE SCLEROSIS RELAPSE
     Dosage: 80 UNITS, ONCE DAILY X 5 DAYS
     Route: 058
     Dates: start: 20150129, end: 20150202
  4. DIAZEPAM. [Concomitant]
     Active Substance: DIAZEPAM
     Dosage: PRN
  5. NEURONTIN [Concomitant]
     Active Substance: GABAPENTIN
     Dosage: 2700 MG, QD

REACTIONS (9)
  - Pain in extremity [Not Recovered/Not Resolved]
  - Tinnitus [Not Recovered/Not Resolved]
  - Neck pain [Not Recovered/Not Resolved]
  - Paraesthesia [Not Recovered/Not Resolved]
  - Myalgia [Not Recovered/Not Resolved]
  - Micturition urgency [Not Recovered/Not Resolved]
  - Muscle spasms [Recovered/Resolved]
  - Headache [Recovered/Resolved]
  - Hypersensitivity [Recovered/Resolved]

NARRATIVE: CASE EVENT DATE: 20150202
